FAERS Safety Report 5220912-9 (Version None)
Quarter: 2007Q1

REPORT INFORMATION
  Report Type: 
  Country: None (occurrence: None)
  Receive Date: 20070125
  Receipt Date: 20070125
  Transmission Date: 20070707
  Serious: Yes (Hospitalization)
  Sender: FDA-Public Use
  Company Number: None

PATIENT
  Sex: Female
  Weight: 77.1115 kg

DRUGS (3)
  1. AUGMENTIN '125' [Suspect]
     Indication: SINUSITIS
     Dosage: PO, PRIOR TO ADMISSION
     Route: 048
  2. PAXIL [Concomitant]
  3. XANAX [Concomitant]

REACTIONS (3)
  - ODYNOPHAGIA [None]
  - PHARYNGOLARYNGEAL PAIN [None]
  - SENSATION OF FOREIGN BODY [None]
